FAERS Safety Report 9779491 (Version 2)
Quarter: 2014Q1

REPORT INFORMATION
  Report Type: Spontaneous
  Country: DE (occurrence: DE)
  Receive Date: 20131223
  Receipt Date: 20140117
  Transmission Date: 20141002
  Serious: Yes (Hospitalization, Other)
  Sender: FDA-Public Use
  Company Number: DE-ASTELLAS-2013US013207

PATIENT
  Age: 52 Year
  Sex: Female

DRUGS (7)
  1. TARCEVA [Suspect]
     Indication: NON-SMALL CELL LUNG CANCER METASTATIC
     Dosage: 150 MG, UID/QD
     Route: 048
     Dates: start: 20130801, end: 20131018
  2. TARCEVA [Suspect]
     Dosage: 75 MG, UID/QD
     Route: 048
     Dates: start: 20131202
  3. DEXAMETHASONE [Concomitant]
     Indication: METASTASES TO CENTRAL NERVOUS SYSTEM
     Dosage: 4 MG, UID/QD
     Route: 048
     Dates: start: 20131021
  4. PANTOPRAZOLE [Concomitant]
     Indication: PROPHYLAXIS AGAINST GASTROINTESTINAL ULCER
     Dosage: 40 MG, UID/QD
     Route: 048
     Dates: start: 201304
  5. VALSARTAN [Concomitant]
     Indication: HYPERTENSION
     Dosage: 80 MG, BID
     Route: 048
  6. HYDROMORPHONE HCL [Concomitant]
     Indication: PAIN
     Dosage: 4 MG, BID
     Route: 048
     Dates: start: 201304
  7. METOPROLOL [Concomitant]
     Indication: PRODUCT USED FOR UNKNOWN INDICATION
     Dosage: UNK
     Route: 065

REACTIONS (1)
  - Hypersensitivity vasculitis [Recovered/Resolved]
